FAERS Safety Report 21218476 (Version 1)
Quarter: 2022Q3

REPORT INFORMATION
  Report Type: Spontaneous
  Country: CN (occurrence: CN)
  Receive Date: 20220816
  Receipt Date: 20220816
  Transmission Date: 20221027
  Serious: Yes (Other)
  Sender: FDA-Public Use
  Company Number: None

PATIENT
  Age: 18 Year
  Sex: Male
  Weight: 65 kg

DRUGS (2)
  1. METRONIDAZOLE [Suspect]
     Active Substance: METRONIDAZOLE
     Indication: Gingivitis
     Dosage: 100 ML, ONCE A DAY
     Route: 041
     Dates: start: 20220713, end: 20220713
  2. CLINDAMYCIN PHOSPHATE [Suspect]
     Active Substance: CLINDAMYCIN PHOSPHATE
     Indication: Gingivitis
     Dosage: 1.8 G, ONCE A DAY, MANUFACTURER: HAINAN CUCURBITA PHARMACEUTICAL GROUP CO., LTD.
     Route: 041
     Dates: start: 20220713, end: 20220713

REACTIONS (4)
  - Papule [Recovering/Resolving]
  - Generalised oedema [Recovering/Resolving]
  - Rash erythematous [Recovering/Resolving]
  - Pruritus [Recovering/Resolving]

NARRATIVE: CASE EVENT DATE: 20220713
